FAERS Safety Report 9757589 (Version 3)
Quarter: 2014Q1

REPORT INFORMATION
  Report Type: Spontaneous
  Country: US (occurrence: US)
  Receive Date: 20131216
  Receipt Date: 20140115
  Transmission Date: 20141002
  Serious: No
  Sender: FDA-Public Use
  Company Number: US-BIOGENIDEC-2013BI116823

PATIENT
  Sex: Female

DRUGS (22)
  1. TYSABRI [Suspect]
     Indication: MULTIPLE SCLEROSIS
     Route: 042
     Dates: start: 20120604
  2. AMPYRA [Concomitant]
     Indication: GAIT DISTURBANCE
     Dates: start: 201208, end: 201301
  3. HYDROCHLOROTHAZIDE [Concomitant]
     Dates: start: 1975
  4. KLOR-CON [Concomitant]
     Dates: start: 1975
  5. BENADRYL [Concomitant]
  6. VESICARE [Concomitant]
  7. ACTHAR [Concomitant]
  8. CYMBALTA [Concomitant]
  9. BACLOFEN [Concomitant]
  10. FLONASE [Concomitant]
  11. ATENOLOL [Concomitant]
  12. XANAX [Concomitant]
  13. FOSAMAX [Concomitant]
  14. ZYRTEC [Concomitant]
  15. VITAMIN A [Concomitant]
  16. WELLBUTRIN [Concomitant]
  17. VITAMIN B COMPLEX [Concomitant]
  18. NAPROXEN [Concomitant]
  19. URECHOLINE [Concomitant]
  20. LIPOFLAVONOID [Concomitant]
  21. NEURONTIN [Concomitant]
     Dates: start: 201201
  22. CALCIUM [Concomitant]

REACTIONS (20)
  - Hypersomnia [Unknown]
  - Aphasia [Unknown]
  - Intentional self-injury [Unknown]
  - Xanthopsia [Unknown]
  - Back disorder [Unknown]
  - Muscle spasticity [Unknown]
  - Cognitive disorder [Unknown]
  - Urticaria [Unknown]
  - Fatigue [Unknown]
  - Multiple sclerosis relapse [Unknown]
  - Feeling abnormal [Not Recovered/Not Resolved]
  - Hypoaesthesia [Unknown]
  - Fall [Recovered/Resolved]
  - Coordination abnormal [Not Recovered/Not Resolved]
  - Balance disorder [Not Recovered/Not Resolved]
  - Gait disturbance [Not Recovered/Not Resolved]
  - Peroneal nerve palsy [Unknown]
  - Paraesthesia [Unknown]
  - Venous injury [Not Recovered/Not Resolved]
  - Vein disorder [Not Recovered/Not Resolved]
